FAERS Safety Report 13667286 (Version 3)
Quarter: 2017Q3

REPORT INFORMATION
  Report Type: Report from Study
  Country: BR (occurrence: BR)
  Receive Date: 20170619
  Receipt Date: 20170731
  Transmission Date: 20171127
  Serious: Yes (Life-Threatening, Other)
  Sender: FDA-Public Use
  Company Number: PHHY2017BR090009

PATIENT
  Sex: Female
  Weight: 68 kg

DRUGS (1)
  1. SANDOSTATIN LAR DEPOT [Suspect]
     Active Substance: OCTREOTIDE ACETATE
     Indication: ACROMEGALY
     Dosage: 20 MG, QMO (ONCE A MONTH) (EVERY 30 DAYS)
     Route: 030

REACTIONS (19)
  - Blood growth hormone increased [Unknown]
  - Injection site bruising [Unknown]
  - Injection site pain [Unknown]
  - Depression [Unknown]
  - Pain [Unknown]
  - Product size issue [Unknown]
  - Tendonitis [Unknown]
  - Fear [Unknown]
  - Headache [Unknown]
  - Bursitis [Unknown]
  - Gait disturbance [Unknown]
  - Crying [Unknown]
  - Musculoskeletal stiffness [Unknown]
  - Injection site haematoma [Unknown]
  - Feeling abnormal [Unknown]
  - Joint swelling [Unknown]
  - Needle issue [Unknown]
  - Carpal tunnel syndrome [Unknown]
  - Product preparation error [Unknown]
